FAERS Safety Report 10377837 (Version 3)
Quarter: 2014Q3

REPORT INFORMATION
  Report Type: Spontaneous
  Country: US (occurrence: US)
  Receive Date: 20140812
  Receipt Date: 20140926
  Transmission Date: 20150326
  Serious: Yes (Hospitalization, Other)
  Sender: FDA-Public Use
  Company Number: US-AMGEN-USASP2014060032

PATIENT
  Age: 67 Year
  Sex: Male
  Weight: 73.48 kg

DRUGS (4)
  1. MULTIVITAMIN                       /00097801/ [Concomitant]
     Active Substance: VITAMINS
     Dosage: UNK UNK, QD
     Route: 048
     Dates: start: 2011
  2. LIPITOR [Concomitant]
     Active Substance: ATORVASTATIN CALCIUM
     Indication: OSTEOARTHRITIS
     Dosage: 20 MG, QD
     Route: 048
     Dates: start: 2011
  3. NPLATE [Suspect]
     Active Substance: ROMIPLOSTIM
     Indication: IMMUNE THROMBOCYTOPENIC PURPURA
     Dosage: 600 UNK, QWK
     Route: 058
     Dates: start: 2008
  4. CALCIUM VITAMIN D [Concomitant]
     Active Substance: CALCIUM\VITAMIN D
     Indication: OSTEOARTHRITIS
     Dosage: 600 MG, QD
     Route: 048
     Dates: start: 2011

REACTIONS (12)
  - Diverticulitis [Unknown]
  - Atelectasis [Unknown]
  - Platelet count decreased [Unknown]
  - Small intestinal obstruction [Unknown]
  - Abdominal pain [Recovering/Resolving]
  - Hiatus hernia [Unknown]
  - Infection [Unknown]
  - Pleural effusion [Unknown]
  - Colonic abscess [Unknown]
  - Abdominal hernia [Unknown]
  - Pelvic abscess [Unknown]
  - Sinusitis [Unknown]

NARRATIVE: CASE EVENT DATE: 20140804
